FAERS Safety Report 8118760-5 (Version None)
Quarter: 2012Q1

REPORT INFORMATION
  Report Type: 
  Country: None (occurrence: None)
  Receive Date: 20120202
  Receipt Date: 20120123
  Transmission Date: 20120608
  Serious: Yes (Other)
  Sender: FDA-Public Use
  Company Number: AUR-APL-2010-03211

PATIENT
  Age: 69 Year
  Sex: Male

DRUGS (11)
  1. RAMIPRIL [Suspect]
     Indication: BLOOD PRESSURE INCREASED
     Dosage: 1.25 MG (1.25 MG, 1 IN 1 D), ORAL
     Route: 048
  2. QUININE SULFATE [Concomitant]
  3. FLUTICASONE PROPIONATE/SALMETEROL [Concomitant]
  4. STEROIDS (STEROID ANTIBACTERIALS) [Concomitant]
  5. VENTOLIN [Concomitant]
  6. MELOXICAM [Suspect]
     Indication: PAIN
     Dosage: 7.5 MG (7.5 MG, 1 IN 1 D)
     Dates: start: 20100916
  7. OMEPRAZOLE [Concomitant]
  8. BISOPROLOL FUMARATE [Suspect]
     Indication: BLOOD PRESSURE INCREASED
     Dosage: 1.25 MG (1.25 MG, 1 IN 1 D)
  9. TIOTROPIUM BROMIDE (TIOTROPIUM BROMIDE) [Concomitant]
  10. ISOSORBIDE (ISOSORBIDE) [Concomitant]
  11. ASPIRIN [Suspect]
     Indication: CARDIAC ARREST
     Dosage: 75 MG (75 MG, 1 1N 1 D)
     Dates: start: 20060101

REACTIONS (9)
  - DELIRIUM [None]
  - GAIT DISTURBANCE [None]
  - DIARRHOEA [None]
  - EYE MOVEMENT DISORDER [None]
  - URINE COLOUR ABNORMAL [None]
  - CONFUSIONAL STATE [None]
  - HALLUCINATION [None]
  - DEPRESSED LEVEL OF CONSCIOUSNESS [None]
  - DRUG INTERACTION [None]
